FAERS Safety Report 6991294-7 (Version None)
Quarter: 2010Q3

REPORT INFORMATION
  Report Type: 
  Country: None (occurrence: None)
  Receive Date: 20100916
  Receipt Date: 20080917
  Transmission Date: 20110219
  Serious: No
  Sender: FDA-Public Use
  Company Number: US-WYE-H06030908

PATIENT
  Sex: Female
  Weight: 88.53 kg

DRUGS (1)
  1. PREMARIN [Suspect]
     Route: 048
     Dates: start: 19880101

REACTIONS (1)
  - COELIAC DISEASE [None]
